FAERS Safety Report 6236715-2 (Version None)
Quarter: 2009Q2

REPORT INFORMATION
  Report Type: 
  Country: None (occurrence: None)
  Receive Date: 20090619
  Receipt Date: 20090417
  Transmission Date: 20091009
  Serious: No
  Sender: FDA-Public Use
  Company Number: US-ASTRAZENECA-2009UW09759

PATIENT
  Sex: Female

DRUGS (8)
  1. ATACAND [Suspect]
     Indication: HYPERTENSION
     Route: 048
     Dates: start: 20090416
  2. LOPRESSOR [Concomitant]
  3. NORVASC [Concomitant]
  4. CARDIZEM [Concomitant]
  5. CLONIDINE [Concomitant]
  6. TRAMADOL HCL [Concomitant]
  7. THIORIADIZIDE [Concomitant]
  8. VICODEN [Concomitant]

REACTIONS (2)
  - DYSURIA [None]
  - THROAT IRRITATION [None]
